FAERS Safety Report 6630631-X (Version None)
Quarter: 2010Q1

REPORT INFORMATION
  Report Type: 
  Country: None (occurrence: None)
  Receive Date: 20100311
  Receipt Date: 20090525
  Transmission Date: 20100710
  Serious: No
  Sender: FDA-Public Use
  Company Number: US-BIOGENIDEC-2009BI015912

PATIENT
  Age: 26 Year
  Sex: Female

DRUGS (1)
  1. AVONEX [Suspect]
     Indication: MULTIPLE SCLEROSIS
     Route: 030
     Dates: start: 20090222

REACTIONS (3)
  - INJECTION SITE PAIN [None]
  - MUSCLE SPASMS [None]
  - MUSCLE TWITCHING [None]
